FAERS Safety Report 7815979-5 (Version None)
Quarter: 2011Q4

REPORT INFORMATION
  Report Type: 
  Country: None (occurrence: None)
  Receive Date: 20111014
  Receipt Date: 20111012
  Transmission Date: 20120403
  Serious: Yes (Hospitalization)
  Sender: FDA-Public Use
  Company Number: FR-MERCK-0907FRA00037

PATIENT
  Age: 59 Year
  Sex: Male

DRUGS (8)
  1. ROPINIROLE HYDROCHLORIDE [Suspect]
     Indication: PARKINSON'S DISEASE
     Route: 048
     Dates: start: 20060101
  2. SINEMET [Suspect]
     Route: 048
     Dates: start: 20081219
  3. CANDESARTAN CILEXETIL [Concomitant]
     Indication: HYPERTENSION
     Route: 048
  4. RASAGILINE MESYLATE [Suspect]
     Indication: PARKINSON'S DISEASE
     Route: 048
     Dates: start: 20100901, end: 20110218
  5. SINEMET [Suspect]
     Indication: PARKINSON'S DISEASE
     Route: 048
     Dates: start: 20060101, end: 20081218
  6. CLOZAPINE [Concomitant]
     Indication: PARKINSON'S DISEASE
     Route: 048
     Dates: start: 20090101
  7. ROPINIROLE HYDROCHLORIDE [Suspect]
     Route: 048
     Dates: start: 20020101, end: 20060101
  8. ROPINIROLE HYDROCHLORIDE [Suspect]
     Route: 048
     Dates: start: 20060101, end: 20110218

REACTIONS (1)
  - PATHOLOGICAL GAMBLING [None]
